FAERS Safety Report 20593638 (Version 1)
Quarter: 2022Q1

REPORT INFORMATION
  Report Type: Spontaneous
  Country: US (occurrence: None)
  Receive Date: 20220315
  Receipt Date: 20220315
  Transmission Date: 20220424
  Serious: No
  Sender: FDA-Public Use
  Company Number: US-ROCHE-2970062

PATIENT
  Age: 34 Year
  Sex: Female
  Weight: 81.720 kg

DRUGS (3)
  1. XOLAIR [Suspect]
     Active Substance: OMALIZUMAB
     Indication: Urticaria
     Dosage: 2 SHOTS ONE GIVEN IN EACH ARM, TOTAL 300 MG ;ONGOING: YES
     Route: 058
     Dates: start: 20211118
  2. ZYRTEC (UNITED STATES) [Concomitant]
     Indication: Hypersensitivity
     Dosage: YES
     Route: 048
  3. PEPCID [Concomitant]
     Active Substance: FAMOTIDINE
     Indication: Hypersensitivity
     Dosage: YES
     Route: 048

REACTIONS (5)
  - Headache [Recovered/Resolved]
  - Ear infection [Not Recovered/Not Resolved]
  - Oropharyngeal pain [Unknown]
  - Dizziness [Unknown]
  - Ear pain [Unknown]

NARRATIVE: CASE EVENT DATE: 20211118
